FAERS Safety Report 6628779-9 (Version None)
Quarter: 2010Q1

REPORT INFORMATION
  Report Type: 
  Country: None (occurrence: None)
  Receive Date: 20100311
  Receipt Date: 20100301
  Transmission Date: 20100710
  Serious: Yes (Other)
  Sender: FDA-Public Use
  Company Number: CN-PFIZER INC-2010026307

PATIENT

DRUGS (2)
  1. SULPERAZON [Suspect]
     Indication: LUNG INFECTION
     Dosage: UNK
     Dates: start: 20090101, end: 20090101
  2. AZITHROMYCIN [Concomitant]
     Indication: LUNG INFECTION
     Dosage: UNK
     Dates: start: 20090101

REACTIONS (2)
  - RENAL FAILURE [None]
  - VASCULITIS [None]
